FAERS Safety Report 21704367 (Version 1)
Quarter: 2022Q4

REPORT INFORMATION
  Report Type: Spontaneous
  Country: IN (occurrence: IN)
  Receive Date: 20221209
  Receipt Date: 20221209
  Transmission Date: 20230113
  Serious: Yes (Death, Hospitalization, Other)
  Sender: FDA-Public Use
  Company Number: IN-STERISCIENCE B.V.-2022-ST-000188

PATIENT
  Age: 25 Year
  Sex: Female

DRUGS (5)
  1. LABETALOL [Suspect]
     Active Substance: LABETALOL\LABETALOL HYDROCHLORIDE
     Indication: Pre-eclampsia
     Dosage: UNK
     Route: 065
  2. MAGNESIUM SULFATE [Suspect]
     Active Substance: MAGNESIUM SULFATE
     Indication: Pre-eclampsia
     Dosage: INFUSION
     Route: 042
  3. FENTANYL [Suspect]
     Active Substance: FENTANYL
     Indication: Sedative therapy
     Dosage: 100 MICROGRAM, QH
     Route: 065
  4. ATRACURIUM [Suspect]
     Active Substance: ATRACURIUM
     Indication: Neuromuscular blocking therapy
     Dosage: 25 MILLIGRAM, QH
     Route: 065
  5. CEFOPERAZONE\SULBACTAM [Suspect]
     Active Substance: CEFOPERAZONE\SULBACTAM
     Indication: Burkholderia infection
     Dosage: UNK
     Route: 065

REACTIONS (3)
  - Haemorrhage intracranial [Fatal]
  - Drug ineffective [Unknown]
  - Maternal exposure during pregnancy [Unknown]
